FAERS Safety Report 26094756 (Version 1)
Quarter: 2025Q4

REPORT INFORMATION
  Report Type: Spontaneous
  Country: US (occurrence: US)
  Receive Date: 20251126
  Receipt Date: 20251126
  Transmission Date: 20260118
  Serious: Yes (Other)
  Sender: NEPHRON STERILE COMPOUNDING CENTER, LLC (NSCC), WEST COLUMBIA, SC
  Company Number: US-Nephron Sterile Compounding Center-2189391

PATIENT
  Age: 4 Month
  Sex: Male
  Weight: 6.8 kg

DRUGS (6)
  1. DEL NIDO CARDIOPLEGIA [Suspect]
     Active Substance: LIDOCAINE HYDROCHLORIDE\POTASSIUM CHLORIDE\SODIUM BICARBONATE
     Indication: Tetralogy of Fallot repair
     Dates: start: 20251105, end: 20251105
  2. EPINEPHRINE [Concomitant]
     Active Substance: EPINEPHRINE
  3. LIDOCAINE [Concomitant]
     Active Substance: LIDOCAINE
  4. MAGNESIUM SULFATE [Concomitant]
     Active Substance: MAGNESIUM SULFATE
  5. CALCIUM [Concomitant]
     Active Substance: CALCIUM
  6. MILRINONE LACTATE [Concomitant]
     Active Substance: MILRINONE LACTATE

REACTIONS (1)
  - Cardiac dysfunction [Not Recovered/Not Resolved]

NARRATIVE: CASE EVENT DATE: 20251105
